FAERS Safety Report 18706761 (Version 2)
Quarter: 2021Q1

REPORT INFORMATION
  Report Type: Spontaneous
  Country: ES (occurrence: ES)
  Receive Date: 20210106
  Receipt Date: 20210111
  Transmission Date: 20210419
  Serious: Yes (Hospitalization)
  Sender: FDA-Public Use
  Company Number: ES-B.I. PHARMACEUTICALS,INC./RIDGEFIELD-2021-BI-073849

PATIENT
  Age: 88 Year

DRUGS (1)
  1. OFEV [Suspect]
     Active Substance: NINTEDANIB
     Indication: IDIOPATHIC PULMONARY FIBROSIS
     Route: 065

REACTIONS (5)
  - Diarrhoea [Unknown]
  - Hepatotoxicity [Recovering/Resolving]
  - Hyperbilirubinaemia [Unknown]
  - Coagulopathy [Unknown]
  - Jaundice [Recovering/Resolving]
